FAERS Safety Report 9117295 (Version 1)
Quarter: 2013Q1

REPORT INFORMATION
  Report Type: Report from Study
  Country: CA (occurrence: CA)
  Receive Date: 20130225
  Receipt Date: 20130225
  Transmission Date: 20140127
  Serious: Yes (Other)
  Sender: FDA-Public Use
  Company Number: CA-JNJFOC-20130208932

PATIENT
  Age: 50 Year
  Sex: Male
  Weight: 59 kg

DRUGS (14)
  1. REMICADE [Suspect]
     Indication: CROHN^S DISEASE
     Route: 042
     Dates: start: 20130214
  2. REMICADE [Suspect]
     Indication: CROHN^S DISEASE
     Route: 042
     Dates: start: 20120418
  3. CHAMPIX [Concomitant]
     Route: 065
  4. NAPROXEN [Concomitant]
     Dosage: AS NECESSARY
     Route: 065
  5. CARBAMAZEPINE [Concomitant]
     Route: 065
  6. SPIRIVA [Concomitant]
     Route: 065
  7. SYNTHROID [Concomitant]
     Dosage: 1.5 TABLETS IN A DAY
     Route: 065
  8. PENTASA [Concomitant]
     Route: 065
  9. CRESTOR [Concomitant]
     Route: 065
  10. SOLUCORTEF [Concomitant]
     Indication: PREMEDICATION
     Route: 042
  11. FERROUS FUMARATE [Concomitant]
     Route: 065
  12. AZATHIOPRINE [Concomitant]
     Route: 048
  13. OXAZEPAM [Concomitant]
     Route: 065
  14. VIMPAT [Concomitant]
     Dosage: ONE PER DAY
     Route: 065

REACTIONS (2)
  - Wrist surgery [Recovered/Resolved]
  - Carpal tunnel syndrome [Recovered/Resolved]
